FAERS Safety Report 6189821-5 (Version None)
Quarter: 2009Q2

REPORT INFORMATION
  Report Type: 
  Country: None (occurrence: None)
  Receive Date: 20090512
  Receipt Date: 20090512
  Transmission Date: 20091009
  Serious: Yes (Disabling)
  Sender: FDA-Public Use
  Company Number: None

PATIENT

DRUGS (1)
  1. MIRENA [Suspect]
     Indication: CONTRACEPTION
     Dosage: INTRA-UTERINE
     Route: 015
     Dates: start: 20050517, end: 20090511

REACTIONS (18)
  - ABORTION SPONTANEOUS [None]
  - ACNE [None]
  - ANGER [None]
  - ANXIETY [None]
  - BACK PAIN [None]
  - BREAST TENDERNESS [None]
  - DEPRESSION [None]
  - DRUG EXPOSURE DURING PREGNANCY [None]
  - FEAR [None]
  - FLUID RETENTION [None]
  - HAIR DISORDER [None]
  - HAIR GROWTH ABNORMAL [None]
  - HYPERTENSION [None]
  - MOOD SWINGS [None]
  - PANIC ATTACK [None]
  - SEBORRHOEA [None]
  - SUICIDAL BEHAVIOUR [None]
  - WEIGHT LOSS POOR [None]
